FAERS Safety Report 11042290 (Version 2)
Quarter: 2015Q2

REPORT INFORMATION
  Report Type: Spontaneous
  Country: US (occurrence: US)
  Receive Date: 20150416
  Receipt Date: 20150507
  Transmission Date: 20150821
  Serious: Yes (Death)
  Sender: FDA-Public Use
  Company Number: PHEH2015US007327

PATIENT
  Sex: Male
  Weight: 71.1 kg

DRUGS (6)
  1. BACTRIM [Concomitant]
     Active Substance: SULFAMETHOXAZOLE\TRIMETHOPRIM
     Indication: PNEUMOCYSTIS JIROVECII PNEUMONIA
     Dosage: 400-80, QHS
     Route: 048
     Dates: start: 200403
  2. CELLCEPT [Suspect]
     Active Substance: MYCOPHENOLATE MOFETIL\MYCOPHENOLATE MOFETIL HYDROCHLORIDE
     Indication: HEART TRANSPLANT
     Dosage: 500 MG, TID
     Route: 048
     Dates: start: 200403
  3. NEORAL [Suspect]
     Active Substance: CYCLOSPORINE
     Indication: IMMUNOSUPPRESSION
  4. ASA [Concomitant]
     Active Substance: ASPIRIN
     Indication: HEART TRANSPLANT
     Dosage: 81 MG, QD
     Route: 048
     Dates: start: 200403
  5. VERAPAMIL [Concomitant]
     Active Substance: VERAPAMIL HYDROCHLORIDE
     Indication: HYPERTENSION
     Dosage: 240 MG, QD
     Route: 048
  6. NEORAL [Suspect]
     Active Substance: CYCLOSPORINE
     Indication: HEART TRANSPLANT
     Dosage: 100 MG, BID
     Route: 065
     Dates: start: 200403

REACTIONS (2)
  - Lung neoplasm malignant [Fatal]
  - Fall [Fatal]

NARRATIVE: CASE EVENT DATE: 2014
